FAERS Safety Report 15578266 (Version 1)
Quarter: 2018Q4

REPORT INFORMATION
  Report Type: Report from Study
  Country: PL (occurrence: PL)
  Receive Date: 20181102
  Receipt Date: 20181102
  Transmission Date: 20190205
  Serious: Yes (Other)
  Sender: FDA-Public Use
  Company Number: PL-ROCHE-2207834

PATIENT

DRUGS (3)
  1. RITUXIMAB. [Suspect]
     Active Substance: RITUXIMAB
     Indication: NEPHROTIC SYNDROME
     Dosage: IN 500ML OF 0.9% NACL BY INTRAVENOUS INFUSION (50 ML/H).
     Route: 042
  2. SULFAMETHOXAZOLE/TRIMETHOPRIM [Concomitant]
     Active Substance: SULFAMETHOXAZOLE\TRIMETHOPRIM
     Route: 065
  3. CLEMASTINE [Concomitant]
     Active Substance: CLEMASTINE

REACTIONS (7)
  - Hypersensitivity [Unknown]
  - Pneumonia [Unknown]
  - Acute kidney injury [Unknown]
  - Intentional product use issue [Unknown]
  - Off label use [Unknown]
  - Pneumocystis jirovecii infection [Unknown]
  - Influenza like illness [Unknown]
